FAERS Safety Report 6530266-3 (Version None)
Quarter: 2009Q4

REPORT INFORMATION
  Report Type: 
  Country: None (occurrence: None)
  Receive Date: 20091231
  Receipt Date: 20091223
  Transmission Date: 20100525
  Serious: Yes (Other)
  Sender: FDA-Public Use
  Company Number: 2009SP033188

PATIENT
  Sex: Male

DRUGS (3)
  1. MIRALAX [Suspect]
     Indication: CONSTIPATION
     Dosage: ; PRN; PO
     Route: 048
     Dates: start: 20090201
  2. SENOKOT /00142201/ [Concomitant]
  3. PAIN MEDICATION [Concomitant]

REACTIONS (4)
  - ABDOMINAL PAIN UPPER [None]
  - NAUSEA [None]
  - PRODUCT CONTAMINATION PHYSICAL [None]
  - RECTAL HAEMORRHAGE [None]
